FAERS Safety Report 9430395 (Version 1)
Quarter: 2013Q3

REPORT INFORMATION
  Report Type: Spontaneous
  Country: US (occurrence: US)
  Receive Date: 20130730
  Receipt Date: 20130730
  Transmission Date: 20140515
  Serious: No
  Sender: FDA-Public Use
  Company Number: US-ABBOTT-13P-163-1084137-00

PATIENT
  Sex: Female
  Weight: 86.26 kg

DRUGS (6)
  1. NIASPAN [Suspect]
     Indication: BLOOD CHOLESTEROL INCREASED
     Route: 048
     Dates: start: 20130422
  2. SIMVASTATIN [Concomitant]
     Indication: PRODUCT USED FOR UNKNOWN INDICATION
  3. TRIAMTERENE [Concomitant]
     Indication: FLUID RETENTION
  4. MVI [Concomitant]
     Indication: PRODUCT USED FOR UNKNOWN INDICATION
  5. B6 [Concomitant]
     Indication: PRODUCT USED FOR UNKNOWN INDICATION
  6. B12 [Concomitant]
     Indication: PRODUCT USED FOR UNKNOWN INDICATION

REACTIONS (2)
  - Flushing [Unknown]
  - Paraesthesia [Unknown]
